FAERS Safety Report 6932556-9 (Version None)
Quarter: 2010Q3

REPORT INFORMATION
  Report Type: 
  Country: None (occurrence: None)
  Receive Date: 20100819
  Receipt Date: 20100811
  Transmission Date: 20110219
  Serious: Yes (Other)
  Sender: FDA-Public Use
  Company Number: US-PFIZER INC-2010101888

PATIENT
  Sex: Male

DRUGS (2)
  1. FRAGMIN [Suspect]
     Indication: EMBOLISM VENOUS
     Dosage: 10000 IU, DAILY
  2. FRAGMIN [Suspect]
     Indication: NEOPLASM MALIGNANT

REACTIONS (1)
  - GASTROINTESTINAL HAEMORRHAGE [None]
